FAERS Safety Report 8973824 (Version 1)
Quarter: 2012Q4

REPORT INFORMATION
  Report Type: 
  Country: US (occurrence: US)
  Receive Date: 20121218
  Receipt Date: 20121218
  Transmission Date: 20130627
  Serious: No
  Sender: FDA-Public Use
  Company Number: US-BRISTOL-MYERS SQUIBB COMPANY-16866030

PATIENT
  Age: 15 Year
  Sex: Male
  Weight: 145.12 kg

DRUGS (10)
  1. ABILIFY [Suspect]
  2. CELEBREX [Concomitant]
     Dosage: Caps
     Route: 048
  3. ULTRAM [Concomitant]
     Dosage: Tab
     Route: 048
  4. LEXAPRO [Concomitant]
  5. TRAZODONE HCL [Concomitant]
  6. CARAFATE [Concomitant]
     Dosage: Tab
     Route: 048
  7. MELATONIN [Concomitant]
  8. NEXIUM [Concomitant]
  9. VITAMIN D [Concomitant]
  10. XANAX [Concomitant]
     Dosage: Tab
     Route: 048

REACTIONS (2)
  - Arthralgia [Unknown]
  - Gait disturbance [Unknown]
